FAERS Safety Report 4743960-1 (Version None)
Quarter: 2005Q3

REPORT INFORMATION
  Report Type: 
  Country: None (occurrence: None)
  Receive Date: 20050801
  Receipt Date: 20040927
  Transmission Date: 20060218
  Serious: Yes (Other)
  Sender: FDA-Public Use
  Company Number: 208750

PATIENT
  Age: 42 Year
  Sex: Female

DRUGS (2)
  1. RITUXAN [Suspect]
     Indication: IDIOPATHIC THROMBOCYTOPENIC PURPURA
     Dosage: 375 MG/M2, Q2W, INTRAVENOUS
     Route: 042
     Dates: start: 20040805
  2. PREDNISONE [Concomitant]

REACTIONS (1)
  - PLATELET COUNT DECREASED [None]
